FAERS Safety Report 9449790 (Version 1)
Quarter: 2013Q3

REPORT INFORMATION
  Report Type: Spontaneous
  Country: FR (occurrence: FR)
  Receive Date: 20130809
  Receipt Date: 20130809
  Transmission Date: 20140515
  Serious: Yes (Hospitalization)
  Sender: FDA-Public Use
  Company Number: FR-JNJFOC-20130800838

PATIENT
  Age: 88 Year
  Sex: Female

DRUGS (8)
  1. DUROGESIC [Suspect]
     Indication: TOOTHACHE
     Route: 062
     Dates: start: 201208, end: 201208
  2. REMINYL [Suspect]
     Indication: PRODUCT USED FOR UNKNOWN INDICATION
     Route: 048
  3. EBIXA [Suspect]
     Indication: COGNITIVE DISORDER
     Route: 048
  4. ALDACTAZINE [Suspect]
     Indication: PRODUCT USED FOR UNKNOWN INDICATION
     Route: 065
  5. ALTIZIDE W/SPIRONOLACTONE [Suspect]
     Indication: PRODUCT USED FOR UNKNOWN INDICATION
     Route: 065
  6. CORDARONE [Concomitant]
     Route: 065
  7. TAHOR [Concomitant]
     Route: 065
  8. INEXIUM [Concomitant]
     Route: 065

REACTIONS (4)
  - Disturbance in attention [Recovered/Resolved]
  - Renal failure [Recovering/Resolving]
  - Somnolence [Recovering/Resolving]
  - Confusional state [Recovering/Resolving]
